FAERS Safety Report 10206483 (Version 1)
Quarter: 2014Q2

REPORT INFORMATION
  Report Type: Spontaneous
  Country: US (occurrence: None)
  Receive Date: 20140527
  Receipt Date: 20140527
  Transmission Date: 20141212
  Serious: No
  Sender: FDA-Public Use
  Company Number: None

PATIENT
  Age: 65 Year
  Sex: Male
  Weight: 88.45 kg

DRUGS (1)
  1. CORTICOSTEROID [Suspect]
     Indication: EPIDURAL INJECTION
     Dates: start: 20140422

REACTIONS (2)
  - Pain in extremity [None]
  - Hypoaesthesia [None]
